FAERS Safety Report 20097937 (Version 2)
Quarter: 2021Q4

REPORT INFORMATION
  Report Type: Spontaneous
  Country: US (occurrence: US)
  Receive Date: 20211122
  Receipt Date: 20211122
  Transmission Date: 20220303
  Serious: Yes (Death, Other)
  Sender: FDA-Public Use
  Company Number: US-CELGENE-USA-20211105890

PATIENT
  Age: 69 Year
  Sex: Male

DRUGS (1)
  1. REVLIMID [Suspect]
     Active Substance: LENALIDOMIDE
     Indication: Plasma cell myeloma
     Dosage: 5 MILLIGRAM
     Route: 048
     Dates: start: 20151130, end: 20170518

REACTIONS (4)
  - Plasma cell myeloma [Fatal]
  - Fracture [Unknown]
  - Renal failure [Unknown]
  - Anaemia [Unknown]

NARRATIVE: CASE EVENT DATE: 20170526
